FAERS Safety Report 9275344 (Version 1)
Quarter: 2013Q1

REPORT INFORMATION
  Report Type: Spontaneous
  Country: US (occurrence: None)
  Receive Date: 20130131
  Receipt Date: 20130131
  Transmission Date: 20140127
  Serious: Yes (Life-Threatening)
  Sender: FDA-Public Use
  Company Number: 54973 AE # 1202

PATIENT
  Age: 77 Year
  Sex: Female

DRUGS (1)
  1. HYLAND^S RESTFUL LEGS TABLETS [Suspect]
     Dosage: 2 TABLETS ONCE

REACTIONS (4)
  - Choking sensation [None]
  - Middle insomnia [None]
  - Dyspnoea [None]
  - Glossodynia [None]
